FAERS Safety Report 4826012-1 (Version None)
Quarter: 2005Q4

REPORT INFORMATION
  Report Type: 
  Country: None (occurrence: None)
  Receive Date: 20051111
  Receipt Date: 20050801
  Transmission Date: 20060501
  Serious: Yes (Hospitalization)
  Sender: FDA-Public Use
  Company Number: US-MERCK-0508USA00738

PATIENT
  Age: 36 Year
  Sex: Female
  Weight: 61 kg

DRUGS (5)
  1. VIOXX [Suspect]
     Indication: NECK PAIN
     Route: 048
     Dates: start: 20020601, end: 20021201
  2. VIOXX [Suspect]
     Route: 048
     Dates: start: 20030201, end: 20030701
  3. SKELAXIN [Concomitant]
     Route: 065
  4. ORTHO NOVUM 2/50 21 TAB [Concomitant]
     Route: 065
  5. TRAMADOLOR [Concomitant]
     Route: 065
     Dates: start: 20020702

REACTIONS (6)
  - ABDOMINAL PAIN UPPER [None]
  - ANTIPHOSPHOLIPID SYNDROME [None]
  - ASTHENIA [None]
  - BRONCHITIS [None]
  - MYOCARDIAL INFARCTION [None]
  - VOMITING [None]
